FAERS Safety Report 7793670-1 (Version None)
Quarter: 2011Q4

REPORT INFORMATION
  Report Type: 
  Country: None (occurrence: None)
  Receive Date: 20111003
  Receipt Date: 20110923
  Transmission Date: 20120403
  Serious: Yes (Other)
  Sender: FDA-Public Use
  Company Number: US-ASTRAZENECA-2011SE57411

PATIENT
  Age: 63 Year
  Sex: Male
  Weight: 78.9 kg

DRUGS (7)
  1. HYDROZELINE [Concomitant]
  2. CASODEX [Concomitant]
  3. BUSPAR [Concomitant]
  4. RANDELA [Concomitant]
  5. IRON [Concomitant]
  6. SEROQUEL XR [Suspect]
     Indication: ATTENTION DEFICIT/HYPERACTIVITY DISORDER
     Route: 048
  7. VISPARONE [Concomitant]

REACTIONS (4)
  - MALIGNANT LYMPHOID NEOPLASM [None]
  - LUNG NEOPLASM MALIGNANT [None]
  - BONE NEOPLASM MALIGNANT [None]
  - WEIGHT DECREASED [None]
